FAERS Safety Report 8596643-4 (Version None)
Quarter: 2012Q3

REPORT INFORMATION
  Report Type: 
  Country: None (occurrence: None)
  Receive Date: 20120815
  Receipt Date: 20120802
  Transmission Date: 20120928
  Serious: Yes (Hospitalization)
  Sender: FDA-Public Use
  Company Number: JP-FRI-1000037747

PATIENT
  Sex: Female
  Weight: 46 kg

DRUGS (12)
  1. LEXAPRO [Suspect]
     Dosage: 10 MG
     Route: 048
     Dates: start: 20120719, end: 20120727
  2. CEPHADOL [Concomitant]
     Dosage: 75 MG
     Route: 048
     Dates: end: 20120802
  3. DEPAS [Concomitant]
     Dosage: 1 MG
     Route: 048
     Dates: end: 20120802
  4. LANSOPRAZOLE [Concomitant]
     Dosage: 15 MG
     Route: 048
     Dates: end: 20120802
  5. ASPIRIN [Concomitant]
     Route: 048
     Dates: end: 20120802
  6. PAXIL [Concomitant]
     Dosage: 10 MG
     Route: 048
     Dates: start: 20120702, end: 20120711
  7. PAXIL [Concomitant]
     Dosage: 20 MG
     Route: 048
     Dates: start: 20120712, end: 20120718
  8. PAXIL [Concomitant]
     Dosage: 10 MG
     Route: 048
     Dates: start: 20120719, end: 20120730
  9. MAGNESIUM OXIDE [Concomitant]
     Dosage: 1.5 G
     Dates: end: 20120802
  10. AFTACH [Concomitant]
     Dosage: 25 MCG
     Dates: start: 20120719, end: 20120802
  11. TEGRETOL [Concomitant]
     Dosage: 200 MG
     Route: 048
     Dates: end: 20120802
  12. PANTOSIN [Concomitant]
     Dosage: 3 G

REACTIONS (2)
  - HEPATIC FUNCTION ABNORMAL [None]
  - RASH [None]
